FAERS Safety Report 5449505-5 (Version None)
Quarter: 2007Q3

REPORT INFORMATION
  Report Type: 
  Country: None (occurrence: None)
  Receive Date: 20070907
  Receipt Date: 20070830
  Transmission Date: 20080115
  Serious: Yes (Other)
  Sender: FDA-Public Use
  Company Number: CHPA2007CA09239

PATIENT
  Age: 59 Year
  Sex: Female

DRUGS (3)
  1. PRODIEM OVERNIGHT RELIEF THERAPY (NCJ(SENNA GLYCOSIDES (CA SALTS OF PU [Suspect]
     Indication: CONSTIPATION
     Dosage: 15 MG, QHS, FOR THREE MONTHS, ORAL
     Route: 048
     Dates: start: 20070601
  2. METFORMIN HCL [Concomitant]
  3. GLYBURIDE [Concomitant]

REACTIONS (3)
  - HEPATIC ENZYME INCREASED [None]
  - INTENTIONAL DRUG MISUSE [None]
  - TREATMENT NONCOMPLIANCE [None]
